FAERS Safety Report 4664030-7 (Version None)
Quarter: 2005Q2

REPORT INFORMATION
  Report Type: 
  Country: None (occurrence: None)
  Receive Date: 20050516
  Receipt Date: 20050505
  Transmission Date: 20051028
  Serious: Yes (Life-Threatening, Hospitalization, Other)
  Sender: FDA-Public Use
  Company Number: ZICO001212

PATIENT
  Age: 67 Year
  Sex: Male

DRUGS (3)
  1. PRIALT [Suspect]
     Indication: METASTATIC PAIN
     Dosage: { 0.1 MCG/HR INTRATHECAL
     Route: 037
     Dates: start: 20050415, end: 20050429
  2. DILAUDID [Concomitant]
  3. OXYCONTIN [Concomitant]

REACTIONS (2)
  - PETECHIAE [None]
  - PLATELET COUNT DECREASED [None]
